FAERS Safety Report 9035639 (Version 1)
Quarter: 2013Q1

REPORT INFORMATION
  Report Type: Report from Study
  Country: US (occurrence: US)
  Receive Date: 20130129
  Receipt Date: 20130129
  Transmission Date: 20140127
  Serious: No
  Sender: FDA-Public Use
  Company Number: US-ABBOTT-12P-163-0911450-00

PATIENT
  Age: 43 Year
  Sex: Female

DRUGS (5)
  1. HUMIRA 40 MG/0.8 ML PEN [Suspect]
     Indication: CROHN^S DISEASE
     Dosage: LOADING DOSE
     Dates: start: 20120217
  2. 6-MP [Concomitant]
     Dosage: 100 MG DAILY
  3. OXYCODONE [Concomitant]
     Indication: PAIN
  4. ADVAIR [Concomitant]
     Indication: ASTHMA
     Dosage: 250 ONE PUFF DAILY
  5. ALBUTEROL [Concomitant]
     Indication: ASTHMA
     Dosage: AS NEEDED

REACTIONS (3)
  - Oropharyngeal pain [Not Recovered/Not Resolved]
  - Nasal congestion [Not Recovered/Not Resolved]
  - Rhinorrhoea [Not Recovered/Not Resolved]
